FAERS Safety Report 7284817-4 (Version None)
Quarter: 2011Q1

REPORT INFORMATION
  Report Type: 
  Country: None (occurrence: None)
  Receive Date: 20110210
  Receipt Date: 20110203
  Transmission Date: 20110831
  Serious: No
  Sender: FDA-Public Use
  Company Number: US-PFIZER INC-2011025642

PATIENT
  Sex: Male
  Weight: 77.098 kg

DRUGS (3)
  1. CELEBREX [Suspect]
     Indication: OEDEMA PERIPHERAL
  2. CELEBREX [Suspect]
     Indication: ARTHRALGIA
  3. CELEBREX [Suspect]
     Indication: LOCAL SWELLING
     Dosage: 200 MG, 1X/DAY
     Route: 048
     Dates: start: 20110203

REACTIONS (1)
  - DRUG INEFFECTIVE [None]
